FAERS Safety Report 16588727 (Version 1)
Quarter: 2019Q3

REPORT INFORMATION
  Report Type: Spontaneous
  Country: US (occurrence: US)
  Receive Date: 20190718
  Receipt Date: 20190718
  Transmission Date: 20191004
  Serious: No
  Sender: FDA-Public Use
  Company Number: US-JNJFOC-20190721399

PATIENT
  Age: 69 Year
  Sex: Male
  Weight: 95.34 kg

DRUGS (1)
  1. VISINE A MULTI-ACTION EYE ALLERGY RELIEF [Suspect]
     Active Substance: NAPHAZOLINE HYDROCHLORIDE\PHENIRAMINE MALEATE
     Indication: EYE PRURITUS
     Dosage: 1 DROP IN EACH EYE 1X PER DAY
     Route: 047

REACTIONS (3)
  - Erythema of eyelid [Not Recovered/Not Resolved]
  - Swelling of eyelid [Recovering/Resolving]
  - Eye irritation [Recovered/Resolved]

NARRATIVE: CASE EVENT DATE: 20190710
